FAERS Safety Report 10862223 (Version 1)
Quarter: 2015Q1

REPORT INFORMATION
  Report Type: Spontaneous
  Country: US (occurrence: None)
  Receive Date: 20150219
  Receipt Date: 20150219
  Transmission Date: 20150721
  Serious: No
  Sender: FDA-Public Use
  Company Number: None

PATIENT
  Age: 61 Year
  Sex: Female

DRUGS (7)
  1. VITAMIN B [Concomitant]
     Active Substance: VITAMIN B
  2. VITAMIN D [Concomitant]
     Active Substance: CHOLECALCIFEROL
  3. ACTIMMUNE [Suspect]
     Active Substance: INTERFERON GAMMA-1B
     Route: 058
     Dates: start: 20141219
  4. BACLOFEN. [Concomitant]
     Active Substance: BACLOFEN
  5. AMBIEN [Concomitant]
     Active Substance: ZOLPIDEM TARTRATE
  6. CELEBREX [Concomitant]
     Active Substance: CELECOXIB
  7. ACTONEL [Concomitant]
     Active Substance: RISEDRONATE SODIUM

REACTIONS (2)
  - Cold sweat [None]
  - Insomnia [None]

NARRATIVE: CASE EVENT DATE: 20150204
